FAERS Safety Report 13415101 (Version 1)
Quarter: 2017Q2

REPORT INFORMATION
  Report Type: Spontaneous
  Country: CA (occurrence: CA)
  Receive Date: 20170407
  Receipt Date: 20170407
  Transmission Date: 20170830
  Serious: Yes (Hospitalization, Other)
  Sender: FDA-Public Use
  Company Number: CA-009507513-1704CAN000154

PATIENT
  Age: 68 Year
  Sex: Male

DRUGS (1)
  1. SINEMET [Suspect]
     Active Substance: CARBIDOPA\LEVODOPA
     Dosage: 1 TABLET (100/25 MG) AT BEDTIME
     Route: 048
     Dates: start: 2016

REACTIONS (1)
  - Pancreatitis [Not Recovered/Not Resolved]
